FAERS Safety Report 5800778-6 (Version None)
Quarter: 2008Q3

REPORT INFORMATION
  Report Type: 
  Country: None (occurrence: None)
  Receive Date: 20080701
  Receipt Date: 20080618
  Transmission Date: 20090109
  Serious: Yes (Death)
  Sender: FDA-Public Use
  Company Number: A-CH2008-20956

PATIENT
  Age: 16 Year
  Sex: Male
  Weight: 47.4 kg

DRUGS (5)
  1. TRACLEER [Suspect]
     Indication: PULMONARY HYPERTENSION
     Dosage: 125 MG, BID, ORAL; 31.25 MG, BID, ORAL; 62.5 MG, BID, ORAL
     Route: 048
     Dates: start: 20040112, end: 20040209
  2. TRACLEER [Suspect]
     Indication: PULMONARY HYPERTENSION
     Dosage: 125 MG, BID, ORAL; 31.25 MG, BID, ORAL; 62.5 MG, BID, ORAL
     Route: 048
     Dates: start: 20040210, end: 20050404
  3. TRACLEER [Suspect]
     Indication: PULMONARY HYPERTENSION
     Dosage: 125 MG, BID, ORAL; 31.25 MG, BID, ORAL; 62.5 MG, BID, ORAL
     Route: 048
     Dates: start: 20050405, end: 20080502
  4. LEVOTHYROXINE SODIUM [Concomitant]
  5. METILDIGOXIN (METILDIGOXIN) [Concomitant]

REACTIONS (4)
  - CARDIAC FAILURE ACUTE [None]
  - INFECTION [None]
  - PULMONARY OEDEMA [None]
  - RIGHT VENTRICULAR FAILURE [None]
